FAERS Safety Report 6652484-6 (Version None)
Quarter: 2010Q1

REPORT INFORMATION
  Report Type: 
  Country: None (occurrence: None)
  Receive Date: 20100323
  Receipt Date: 20100310
  Transmission Date: 20100710
  Serious: Yes (Other)
  Sender: FDA-Public Use
  Company Number: 2009AP005126

PATIENT
  Age: 48 Year
  Sex: Female

DRUGS (3)
  1. ALENDRONATE SODIUM [Suspect]
     Indication: OSTEOPOROSIS
     Dosage: 70 MG;TAB;PO;QW
     Route: 048
  2. PREDNISOLONE [Concomitant]
  3. INSULIN ASPART (INSULIN ASPART) [Concomitant]

REACTIONS (1)
  - HYPOCALCAEMIA [None]
